FAERS Safety Report 6116030-8 (Version None)
Quarter: 2009Q1

REPORT INFORMATION
  Report Type: 
  Country: None (occurrence: None)
  Receive Date: 20090314
  Receipt Date: 20081210
  Transmission Date: 20090719
  Serious: No
  Sender: FDA-Public Use
  Company Number: US-ABBOTT-08P-163-0492455-00

PATIENT
  Sex: Female
  Weight: 59.02 kg

DRUGS (9)
  1. HUMIRA [Suspect]
     Indication: PSORIASIS
     Route: 058
     Dates: start: 20081003, end: 20081003
  2. HUMIRA [Suspect]
     Indication: ARTHRITIS
     Route: 058
     Dates: start: 20081011
  3. OLUX [Concomitant]
     Indication: PSORIASIS
  4. TRIAMCINALONE [Concomitant]
     Indication: PSORIASIS
  5. ANTIHYPERTENSIVES [Concomitant]
     Indication: HYPERTENSION
  6. PROZAC [Concomitant]
     Indication: NERVOUSNESS
  7. VIVAL [Concomitant]
     Indication: HORMONE REPLACEMENT THERAPY
  8. ALDENDRONE SODIUM [Concomitant]
     Indication: OSTEOPOROSIS PROPHYLAXIS
  9. AMBIEN [Concomitant]
     Indication: SLEEP DISORDER THERAPY

REACTIONS (5)
  - ALOPECIA [None]
  - CONTUSION [None]
  - FATIGUE [None]
  - HYPOAESTHESIA [None]
  - ONYCHOCLASIS [None]
